FAERS Safety Report 9778815 (Version 4)
Quarter: 2014Q2

REPORT INFORMATION
  Report Type: Spontaneous
  Country: GB (occurrence: GB)
  Receive Date: 20131223
  Receipt Date: 20140610
  Transmission Date: 20141212
  Serious: Yes (Life-Threatening, Hospitalization, Other)
  Sender: FDA-Public Use
  Company Number: GB-009507513-1312GBR007541

PATIENT
  Age: 67 Year
  Sex: Female
  Weight: 65.77 kg

DRUGS (4)
  1. CLARITYN ALLERGY [Suspect]
     Indication: SEASONAL ALLERGY
     Dosage: 10 MG, UNK / CONSERVATIVE CLARITYN REGIME
     Route: 048
     Dates: start: 20130503, end: 20130805
  2. CLARITYN ALLERGY [Suspect]
     Dosage: HALF A CLARITYN EVERY TWO DAYS
     Route: 048
     Dates: start: 201204
  3. CLARITYN ALLERGY [Suspect]
     Dosage: A WHOLE TABLET, IN EXTREMIS
     Route: 048
     Dates: start: 2012
  4. LEVOTHYROXINE SODIUM [Concomitant]
     Dosage: 50 MICROGRAM, 1/1 DAYS
     Route: 048

REACTIONS (23)
  - Peritonitis [Recovered/Resolved]
  - Diverticulum [Unknown]
  - Decreased appetite [Recovered/Resolved]
  - Abdominal distension [Recovered/Resolved]
  - Intestinal perforation [Unknown]
  - Chills [Recovered/Resolved]
  - Abdominal distension [Unknown]
  - Abdominal discomfort [Recovered/Resolved]
  - Abdominal pain upper [Unknown]
  - Constipation [Recovered/Resolved]
  - Malaise [Unknown]
  - Fatigue [Recovered/Resolved]
  - Somnolence [Recovered/Resolved]
  - Dry mouth [Recovered/Resolved]
  - Colostomy [Unknown]
  - Tremor [Recovered/Resolved]
  - Retching [Recovered/Resolved]
  - Tachyphrenia [Recovered/Resolved]
  - Flatulence [Recovered/Resolved]
  - Constipation [Recovered/Resolved]
  - General physical condition abnormal [Recovered/Resolved]
  - Adverse event [Recovered/Resolved]
  - Drug ineffective [Unknown]
